FAERS Safety Report 9937659 (Version 4)
Quarter: 2014Q2

REPORT INFORMATION
  Report Type: Spontaneous
  Country: US (occurrence: US)
  Receive Date: 20140303
  Receipt Date: 20140421
  Transmission Date: 20141212
  Serious: No
  Sender: FDA-Public Use
  Company Number: US-BIOGENIDEC-2014BI015210

PATIENT
  Age: 61 Year
  Sex: Female

DRUGS (20)
  1. TECFIDERA [Suspect]
     Indication: MULTIPLE SCLEROSIS
     Dates: start: 201309
  2. TECFIDERA [Suspect]
     Indication: MULTIPLE SCLEROSIS
     Route: 048
     Dates: start: 20131015
  3. TECFIDERA [Suspect]
     Indication: MULTIPLE SCLEROSIS
     Route: 048
     Dates: start: 20131022, end: 20140225
  4. ADVAIR DISKUS [Concomitant]
     Route: 055
  5. FLONASE [Concomitant]
     Route: 045
  6. SINGULAIR [Concomitant]
  7. VYVANSE [Concomitant]
     Route: 048
  8. PROVIGIL [Concomitant]
     Route: 048
  9. SYNTHROID [Concomitant]
     Route: 048
  10. CYCLOBENZAPRINE [Concomitant]
     Route: 048
  11. BACLOFEN [Concomitant]
     Route: 048
  12. WELLBUTRIN XL [Concomitant]
     Route: 048
  13. DIOVAN HCT [Concomitant]
     Route: 048
  14. COLACE [Concomitant]
     Route: 048
  15. ARICEPT [Concomitant]
     Route: 048
  16. LEXAPRO [Concomitant]
     Route: 048
  17. PRAVACHOL [Concomitant]
     Route: 048
  18. LUNESTA [Concomitant]
     Route: 048
  19. ASPIR-LOW [Concomitant]
     Route: 048
  20. XANAX [Concomitant]

REACTIONS (6)
  - Hiatus hernia [Unknown]
  - Gastrooesophageal reflux disease [Unknown]
  - Gastrointestinal viral infection [Recovered/Resolved]
  - Weight decreased [Not Recovered/Not Resolved]
  - Muscle atrophy [Not Recovered/Not Resolved]
  - Viral infection [Recovered/Resolved]
